FAERS Safety Report 5505494-6 (Version None)
Quarter: 2007Q4

REPORT INFORMATION
  Report Type: 
  Country: None (occurrence: None)
  Receive Date: 20071031
  Receipt Date: 20071015
  Transmission Date: 20080405
  Serious: Yes (Other)
  Sender: FDA-Public Use
  Company Number: GXKR2007DE08863

PATIENT
  Age: 50 Year
  Sex: Female

DRUGS (13)
  1. MELPERONE [Suspect]
     Indication: SCHIZOPHRENIA
     Dosage: 350 MG, QD
     Dates: start: 20060919
  2. LEVOMEPROMAZINE                 (LEVOMEPROMAZINE) [Suspect]
  3. PIPAMPERONE                         (PIPAMPERONE) [Suspect]
  4. AMISULPRIDE                           (AMISULPRIDE) [Suspect]
  5. PROMETHAZINE [Suspect]
  6. BENPERIDOL                      (BENPERIDOL) [Suspect]
     Indication: SCHIZOPHRENIA
     Dosage: 19 MG, QD
     Dates: start: 20061017
  7. VALPROATE SODIUM [Concomitant]
  8. BIPERIDEN HYDROCHLORIDE TAB [Concomitant]
  9. DIAZEPAM [Concomitant]
  10. LORAZEPAM [Concomitant]
  11. FLUNITRAZEPAM                   (FLUNITRAZEPAM) [Concomitant]
  12. ZOPICLONE                   (ZOPICLONE) [Concomitant]
  13. CERTOPARIN SODIUM                      (CERTOPARIN SODIUM) [Concomitant]

REACTIONS (7)
  - BRADYCARDIA [None]
  - COMA [None]
  - DISEASE RECURRENCE [None]
  - HYPOGLYCAEMIA [None]
  - HYPOTHERMIA [None]
  - NEUROLEPTIC MALIGNANT SYNDROME [None]
  - SOMNOLENCE [None]
